FAERS Safety Report 4315871-7 (Version None)
Quarter: 2004Q1

REPORT INFORMATION
  Report Type: 
  Country: None (occurrence: None)
  Receive Date: 20040310
  Receipt Date: 20040223
  Transmission Date: 20041129
  Serious: No
  Sender: FDA-Public Use
  Company Number: 03P-163-0210337-00

PATIENT
  Age: 35 Year
  Sex: Female
  Weight: 58.9676 kg

DRUGS (11)
  1. MERIDIA [Suspect]
     Indication: WEIGHT CONTROL
     Dosage: SEE IMAGE
     Route: 048
     Dates: start: 20010301, end: 20020101
  2. MERIDIA [Suspect]
     Indication: WEIGHT CONTROL
     Dosage: SEE IMAGE
     Route: 048
     Dates: start: 20020101, end: 20021201
  3. MERIDIA [Suspect]
     Indication: WEIGHT CONTROL
     Dosage: SEE IMAGE
     Route: 048
     Dates: start: 20030115, end: 20030131
  4. EUGYNON [Concomitant]
  5. PRENATAL PLUS [Concomitant]
  6. ACETAMINOPHEN [Concomitant]
  7. IBUPROFEN [Concomitant]
  8. CO-ADVIL [Concomitant]
  9. HYPERICUM PERFORATUM [Concomitant]
  10. PSEUDOEPHEDRINE HYDROCHLORIDE [Concomitant]
  11. ALPRAZOLAM [Concomitant]

REACTIONS (18)
  - BLOOD PRESSURE FLUCTUATION [None]
  - BLOOD PRESSURE INCREASED [None]
  - BUNDLE BRANCH BLOCK RIGHT [None]
  - CARDIOVASCULAR DISORDER [None]
  - COMPLICATIONS OF MATERNAL EXPOSURE TO THERAPEUTIC DRUGS [None]
  - DIZZINESS [None]
  - ELECTROCARDIOGRAM ST-T CHANGE [None]
  - HEADACHE [None]
  - HEART RATE INCREASED [None]
  - HYPOAESTHESIA [None]
  - LABORATORY TEST ABNORMAL [None]
  - LOWER RESPIRATORY TRACT INFECTION [None]
  - MALIGNANT HYPERTENSION [None]
  - PARAESTHESIA [None]
  - PREGNANCY [None]
  - REBOUND HYPERTENSION [None]
  - STRESS SYMPTOMS [None]
  - TRANSIENT ISCHAEMIC ATTACK [None]
